FAERS Safety Report 5738735-0 (Version None)
Quarter: 2008Q2

REPORT INFORMATION
  Report Type: 
  Country: None (occurrence: None)
  Receive Date: 20080513
  Receipt Date: 20080429
  Transmission Date: 20081010
  Serious: Yes (Death, Hospitalization)
  Sender: FDA-Public Use
  Company Number: 2008AL002780

PATIENT
  Age: 79 Year
  Sex: Male

DRUGS (5)
  1. DIGOXIN [Suspect]
     Indication: CARDIAC DISORDER
     Dosage: 0.25 MG; QD; PO
     Route: 048
     Dates: start: 20040501
  2. ARICEPT [Concomitant]
  3. ATIVAN [Concomitant]
  4. ZOCOR [Concomitant]
  5. NAMENDA [Concomitant]

REACTIONS (4)
  - BLOOD PRESSURE INCREASED [None]
  - DEHYDRATION [None]
  - PNEUMONIA [None]
  - SEPSIS [None]
